FAERS Safety Report 8605359 (Version 12)
Quarter: 2013Q1

REPORT INFORMATION
  Report Type: Report from Study
  Country: FR (occurrence: FR)
  Receive Date: 20120608
  Receipt Date: 20130218
  Transmission Date: 20140127
  Serious: Yes (Hospitalization, Other)
  Sender: FDA-Public Use
  Company Number: FR-BRISTOL-MYERS SQUIBB COMPANY-16646127

PATIENT
  Age: 46 Year
  Sex: Male

DRUGS (10)
  1. IPILIMUMAB [Suspect]
     Indication: MALIGNANT MELANOMA
     Dosage: 15-MAY-2012, 05-JUN-2012 + 27-JUN-2012?15MAY2012-27JUN2012:250ML.?15MAY12-07JUN12:10MG/KG
     Route: 042
     Dates: start: 20120515
  2. TIORFAN [Concomitant]
     Dates: start: 20120712
  3. PARACETAMOL [Concomitant]
  4. CARBOCAL [Concomitant]
     Dates: start: 20120531
  5. LOVENOX [Concomitant]
     Dosage: 4000 UI
     Dates: start: 20120531
  6. DIFFU-K [Concomitant]
     Route: 048
     Dates: start: 20120531
  7. PREDNISOLONE [Concomitant]
     Dates: start: 20120531, end: 20120602
  8. TRIMEBUTINE [Concomitant]
     Dates: start: 20120702, end: 20120706
  9. ACETORPHAN [Concomitant]
     Dosage: 300 MG FROM 18-JUL-2012 ONWARD.
     Dates: start: 20120712, end: 20120717
  10. CORTICOSTEROID [Concomitant]
     Route: 048
     Dates: start: 20120718

REACTIONS (2)
  - Hepatocellular injury [Recovered/Resolved]
  - Hyperthermia [Recovered/Resolved]
